FAERS Safety Report 9255669 (Version 1)
Quarter: 2013Q2

REPORT INFORMATION
  Report Type: Spontaneous
  Country: SE (occurrence: SE)
  Receive Date: 20130425
  Receipt Date: 20130425
  Transmission Date: 20140414
  Serious: Yes (Hospitalization, Other)
  Sender: FDA-Public Use
  Company Number: SE-PFIZER INC-2013127494

PATIENT
  Age: 63 Year
  Sex: Male

DRUGS (4)
  1. CHAMPIX [Suspect]
     Dosage: UNK
  2. TICAGRELOR [Concomitant]
     Dosage: 90 MG, UNK
  3. TROMBYL [Concomitant]
     Dosage: 75 MG, UNK
  4. RAMIPRIL [Concomitant]
     Dosage: UNK

REACTIONS (7)
  - Psoriasis [Unknown]
  - Thrombophlebitis [Unknown]
  - Staphylococcal sepsis [Unknown]
  - Oesophagitis [Unknown]
  - Iron deficiency [Unknown]
  - Fatigue [Unknown]
  - Hypersomnia [Unknown]
